FAERS Safety Report 20517442 (Version 1)
Quarter: 2022Q1

REPORT INFORMATION
  Report Type: Spontaneous
  Country: US (occurrence: None)
  Receive Date: 20220224
  Receipt Date: 20220224
  Transmission Date: 20220424
  Serious: Yes (Hospitalization)
  Sender: FDA-Public Use
  Company Number: None

PATIENT
  Age: 57 Year
  Sex: Female

DRUGS (1)
  1. CAPECITABINE [Suspect]
     Active Substance: CAPECITABINE
     Dosage: 4500MG DAILY ORAL
     Route: 048
     Dates: start: 202202

REACTIONS (3)
  - Stomatitis [None]
  - Fatigue [None]
  - Loss of consciousness [None]

NARRATIVE: CASE EVENT DATE: 20220224
